FAERS Safety Report 9848093 (Version 1)
Quarter: 2014Q1

REPORT INFORMATION
  Report Type: Spontaneous
  Country: US (occurrence: None)
  Receive Date: 20140123
  Receipt Date: 20140123
  Transmission Date: 20141002
  Serious: Yes (Other)
  Sender: FDA-Public Use
  Company Number: None

PATIENT
  Age: 68 Year
  Sex: Female

DRUGS (1)
  1. OXYCODONE/ ACETAMINOPHEN [Suspect]
     Indication: ANALGESIC THERAPY
     Dosage: 1 TAB, Q 12 HOURS, PO
     Route: 048
     Dates: start: 20140122, end: 20140122

REACTIONS (4)
  - Rash [None]
  - Pruritus [None]
  - Drug hypersensitivity [None]
  - Product substitution issue [None]
